FAERS Safety Report 24841365 (Version 1)
Quarter: 2025Q1

REPORT INFORMATION
  Report Type: Spontaneous
  Country: US (occurrence: None)
  Receive Date: 20250114
  Receipt Date: 20250114
  Transmission Date: 20250408
  Serious: Yes (Hospitalization)
  Sender: FDA-CTU
  Company Number: None

PATIENT
  Age: 73 Year
  Sex: Male

DRUGS (1)
  1. RIVAROXABAN [Suspect]
     Active Substance: RIVAROXABAN
     Dosage: FREQUENCY : DAILY;?
     Route: 048

REACTIONS (6)
  - Cerebral haemorrhage [None]
  - Loss of consciousness [None]
  - Head injury [None]
  - Skin laceration [None]
  - Extra-axial haemorrhage [None]
  - Cardiac failure congestive [None]

NARRATIVE: CASE EVENT DATE: 20241217
